FAERS Safety Report 24435098 (Version 1)
Quarter: 2024Q4

REPORT INFORMATION
  Report Type: Report from Study
  Country: US (occurrence: US)
  Receive Date: 20241014
  Receipt Date: 20241014
  Transmission Date: 20250114
  Serious: Yes (Other)
  Sender: JOHNSON AND JOHNSON
  Company Number: US-JNJFOC-20240953864

PATIENT
  Age: 53 Year
  Sex: Female

DRUGS (1)
  1. SPRAVATO [Suspect]
     Active Substance: ESKETAMINE
     Indication: Depression
     Dosage: ^84 MG, 25 TOTAL DOSES^
     Dates: start: 20231025, end: 20240802

REACTIONS (3)
  - Suicidal ideation [Unknown]
  - Product dose omission issue [Unknown]
  - Depression [Unknown]

NARRATIVE: CASE EVENT DATE: 20240101
